FAERS Safety Report 9142654 (Version 1)
Quarter: 2013Q1

REPORT INFORMATION
  Report Type: Spontaneous
  Country: MX (occurrence: MX)
  Receive Date: 20130306
  Receipt Date: 20130306
  Transmission Date: 20140127
  Serious: Yes (Other)
  Sender: FDA-Public Use
  Company Number: PHHY2013MX021518

PATIENT
  Sex: Female

DRUGS (2)
  1. DIOVAN [Suspect]
     Indication: HYPERTENSION
     Dosage: 80 MG, DAILY
     Route: 048
     Dates: start: 20110706, end: 201212
  2. CINNARIZINE [Concomitant]
     Indication: NERVOUS SYSTEM DISORDER
     Dosage: 1 UKN, DAILY
     Dates: start: 201210

REACTIONS (2)
  - Embolism [Recovered/Resolved]
  - Hemiplegia [Unknown]
